FAERS Safety Report 6509365-8 (Version None)
Quarter: 2009Q4

REPORT INFORMATION
  Report Type: 
  Country: None (occurrence: None)
  Receive Date: 20091222
  Receipt Date: 20091015
  Transmission Date: 20100525
  Serious: Yes (Disabling, Other)
  Sender: FDA-Public Use
  Company Number: US-BAYER-200919080NA

PATIENT
  Age: 79 Year
  Sex: Male
  Weight: 68 kg

DRUGS (15)
  1. MAGNEVIST [Suspect]
     Indication: FISTULOGRAM
     Dosage: TOTAL DAILY DOSE: 20 ML
     Route: 042
     Dates: start: 20051121, end: 20051121
  2. MAGNEVIST [Suspect]
     Route: 042
     Dates: start: 20060416, end: 20060416
  3. MAGNEVIST [Suspect]
     Dosage: TOTAL DAILY DOSE: 20 ML
     Dates: start: 20060816, end: 20060816
  4. COUMADIN [Concomitant]
  5. LIPITOR [Concomitant]
  6. PROCARDIA [Concomitant]
  7. TERAZOSIN HCL [Concomitant]
  8. ROCALTROL [Concomitant]
  9. ATENOLOL [Concomitant]
  10. LASIX [Concomitant]
  11. PREDNISONE [Concomitant]
  12. ASPIRIN [Concomitant]
  13. ALLOPURINOL [Concomitant]
  14. NEPHRO-VITE [Concomitant]
  15. MEGESTROL ACETATE [Concomitant]

REACTIONS (23)
  - ANXIETY [None]
  - DEFORMITY [None]
  - EMOTIONAL DISTRESS [None]
  - FATIGUE [None]
  - FIBROSIS [None]
  - GENERAL PHYSICAL HEALTH DETERIORATION [None]
  - INDURATION [None]
  - JOINT CONTRACTURE [None]
  - JOINT RANGE OF MOTION DECREASED [None]
  - JOINT STIFFNESS [None]
  - MOBILITY DECREASED [None]
  - MUSCLE ATROPHY [None]
  - MUSCLE DISORDER [None]
  - MUSCULOSKELETAL STIFFNESS [None]
  - NEPHROGENIC SYSTEMIC FIBROSIS [None]
  - OEDEMA [None]
  - PAIN [None]
  - PAIN IN EXTREMITY [None]
  - QUALITY OF LIFE DECREASED [None]
  - SCAR [None]
  - SKIN FIBROSIS [None]
  - SKIN HYPERTROPHY [None]
  - SKIN TIGHTNESS [None]
